FAERS Safety Report 12853761 (Version 1)
Quarter: 2016Q4

REPORT INFORMATION
  Report Type: Spontaneous
  Country: JP (occurrence: JP)
  Receive Date: 20161017
  Receipt Date: 20161017
  Transmission Date: 20170207
  Serious: Yes (Other)
  Sender: FDA-Public Use
  Company Number: PHJP2016JP028735

PATIENT
  Sex: Female

DRUGS (2)
  1. GLIVEC [Suspect]
     Active Substance: IMATINIB MESYLATE
     Indication: GASTROINTESTINAL STROMAL TUMOUR
     Dosage: 400 MG (4 TABLETS), QD
     Route: 048
  2. GLIVEC [Suspect]
     Active Substance: IMATINIB MESYLATE
     Dosage: 200 MG (2 TABLETS), QD
     Route: 048

REACTIONS (10)
  - Diarrhoea [Not Recovered/Not Resolved]
  - Urticaria [Recovering/Resolving]
  - Tracheal stenosis [Recovering/Resolving]
  - Weight decreased [Not Recovered/Not Resolved]
  - Dyspnoea [Recovering/Resolving]
  - Dizziness [Recovering/Resolving]
  - Sleep disorder due to general medical condition, insomnia type [Recovering/Resolving]
  - Peripheral swelling [Recovering/Resolving]
  - Blood pressure decreased [Recovering/Resolving]
  - Vomiting [Recovering/Resolving]
